FAERS Safety Report 8609034-4 (Version None)
Quarter: 2012Q3

REPORT INFORMATION
  Report Type: 
  Country: None (occurrence: None)
  Receive Date: 20120821
  Receipt Date: 20101202
  Transmission Date: 20120928
  Serious: Yes (Hospitalization)
  Sender: FDA-Public Use
  Company Number: US-ROCHE-1104281

PATIENT
  Sex: Female
  Weight: 59.1 kg

DRUGS (1)
  1. MABTHERA [Suspect]
     Indication: NON-HODGKIN'S LYMPHOMA
     Route: 042
     Dates: start: 20101118

REACTIONS (3)
  - PRURITUS [None]
  - RASH [None]
  - GASTROINTESTINAL MOTILITY DISORDER [None]
